FAERS Safety Report 4527314-9 (Version None)
Quarter: 2004Q4

REPORT INFORMATION
  Report Type: 
  Country: None (occurrence: None)
  Receive Date: 20041214
  Receipt Date: 20041214
  Transmission Date: 20050328
  Serious: Yes (Hospitalization)
  Sender: FDA-Public Use
  Company Number: None

PATIENT
  Sex: Male

DRUGS (6)
  1. VELCADE [Suspect]
     Indication: NON-HODGKIN'S LYMPHOMA
     Dosage: 1.86 MG IV
     Route: 042
     Dates: start: 20041122
  2. CHOP(CYCLOPHOSPHAMIDE,DOXORUBICIN,VINCRISTINE,PREDNISONE) [Suspect]
     Dates: start: 20041122
  3. RITUXAN [Suspect]
     Dates: start: 20041122
  4. PREDNISONE [Concomitant]
  5. PROTONIX [Concomitant]
  6. PREDNISONE [Concomitant]

REACTIONS (5)
  - ANOREXIA [None]
  - FIBROSIS [None]
  - GASTRIC OUTLET OBSTRUCTION [None]
  - LYMPHOMA [None]
  - PEPTIC ULCER [None]
